FAERS Safety Report 20134464 (Version 3)
Quarter: 2022Q3

REPORT INFORMATION
  Report Type: Report from Study
  Country: MX (occurrence: MX)
  Receive Date: 20211201
  Receipt Date: 20220706
  Transmission Date: 20221027
  Serious: Yes (Life-Threatening, Hospitalization, Other)
  Sender: FDA-Public Use
  Company Number: MX-NOVARTISPH-NVSC2021MX183493

PATIENT
  Age: 48 Year
  Sex: Female
  Weight: 67 kg

DRUGS (2)
  1. GILENYA [Suspect]
     Active Substance: FINGOLIMOD HYDROCHLORIDE
     Indication: Multiple sclerosis
     Dosage: 0.5 MG, QD
     Route: 048
     Dates: start: 20210226
  2. TELMISARTAN [Concomitant]
     Active Substance: TELMISARTAN
     Indication: Hypertension
     Dosage: 80 MG
     Route: 048

REACTIONS (7)
  - COVID-19 [Unknown]
  - Malaise [Unknown]
  - Pain [Recovering/Resolving]
  - Feeling abnormal [Recovering/Resolving]
  - Headache [Recovered/Resolved]
  - Fatigue [Recovering/Resolving]
  - Myalgia [Recovering/Resolving]

NARRATIVE: CASE EVENT DATE: 20210726
